FAERS Safety Report 25544376 (Version 2)
Quarter: 2025Q3

REPORT INFORMATION
  Report Type: Spontaneous
  Country: AU (occurrence: AU)
  Receive Date: 20250711
  Receipt Date: 20250905
  Transmission Date: 20251021
  Serious: Yes (Other)
  Sender: PFIZER
  Company Number: AU-PFIZER INC-202500139784

PATIENT
  Age: 64 Year
  Sex: Female

DRUGS (1)
  1. ADALIMUMAB [Suspect]
     Active Substance: ADALIMUMAB
     Indication: Rheumatoid arthritis

REACTIONS (4)
  - Sarcoidosis of lymph node [Unknown]
  - Uveitis [Unknown]
  - Interstitial lung disease [Unknown]
  - Cardiac disorder [Unknown]
